FAERS Safety Report 8266913-8 (Version None)
Quarter: 2012Q2

REPORT INFORMATION
  Report Type: 
  Country: None (occurrence: None)
  Receive Date: 20120404
  Receipt Date: 20120404
  Transmission Date: 20120825
  Serious: Yes (Life-Threatening)
  Sender: FDA-Public Use
  Company Number: None

PATIENT
  Age: 52 Year
  Sex: Female
  Weight: 54.5 kg

DRUGS (2)
  1. CYMBALTA [Suspect]
     Indication: ANXIETY
     Dosage: 60 MG DAILY ORAL
     Route: 048
     Dates: start: 20090501, end: 20111201
  2. CYMBALTA [Suspect]
     Indication: DEPRESSION
     Dosage: 60 MG DAILY ORAL
     Route: 048
     Dates: start: 20090501, end: 20111201

REACTIONS (8)
  - DIZZINESS [None]
  - HALLUCINATIONS, MIXED [None]
  - BALANCE DISORDER [None]
  - MOVEMENT DISORDER [None]
  - HEADACHE [None]
  - DEPRESSION [None]
  - ANXIETY [None]
  - SUICIDAL IDEATION [None]
